FAERS Safety Report 25843936 (Version 1)
Quarter: 2025Q3

REPORT INFORMATION
  Report Type: Report from Study
  Country: CA (occurrence: CA)
  Receive Date: 20250925
  Receipt Date: 20250925
  Transmission Date: 20251021
  Serious: Yes (Other)
  Sender: ABBVIE
  Company Number: CA-ABBVIE-6472107

PATIENT
  Age: 59 Year
  Sex: Female

DRUGS (2)
  1. SKYRIZI [Suspect]
     Active Substance: RISANKIZUMAB-RZAA
     Indication: Psoriasis
     Route: 058
  2. SKYRIZI [Suspect]
     Active Substance: RISANKIZUMAB-RZAA
     Indication: Crohn^s disease

REACTIONS (7)
  - Intestinal anastomosis [Unknown]
  - Anorectal discomfort [Unknown]
  - Diarrhoea [Unknown]
  - Abdominal pain lower [Unknown]
  - Colitis [Unknown]
  - Proctitis [Unknown]
  - Anorectal polyp [Unknown]

NARRATIVE: CASE EVENT DATE: 20250101
